FAERS Safety Report 9738660 (Version 1)
Quarter: 2013Q4

REPORT INFORMATION
  Report Type: Spontaneous
  Country: US (occurrence: US)
  Receive Date: 20131209
  Receipt Date: 20131209
  Transmission Date: 20140711
  Serious: No
  Sender: FDA-Public Use
  Company Number: US-BIOGENIDEC-2013BI115172

PATIENT
  Age: 42 Year
  Sex: Male

DRUGS (12)
  1. AVONEX [Suspect]
     Indication: MULTIPLE SCLEROSIS
     Route: 030
     Dates: start: 20050107
  2. AVONEX [Suspect]
     Indication: MULTIPLE SCLEROSIS
     Route: 030
  3. LEVOTHYROXINE [Concomitant]
     Indication: HYPOTHYROIDISM
     Route: 048
  4. BETHANECHOL [Concomitant]
     Indication: PROSTATIC DISORDER
     Route: 048
  5. FLOMAX [Concomitant]
     Indication: PROSTATIC DISORDER
     Route: 048
  6. MAXIDE [Concomitant]
     Indication: HYPERTENSION
     Route: 048
  7. ASPIRIN [Concomitant]
     Route: 048
  8. LORATADINE [Concomitant]
     Indication: HEADACHE
     Route: 048
  9. VITAMIN B6 [Concomitant]
     Route: 048
  10. VITAMIN C [Concomitant]
     Route: 048
  11. VITAMIN D3 [Concomitant]
     Route: 048
  12. PREDNISONE [Concomitant]
     Route: 048

REACTIONS (4)
  - Herpes zoster [Not Recovered/Not Resolved]
  - Wrist fracture [Recovered/Resolved]
  - Fatigue [Recovered/Resolved]
  - Influenza like illness [Recovered/Resolved]
